FAERS Safety Report 25210741 (Version 1)
Quarter: 2025Q2

REPORT INFORMATION
  Report Type: Spontaneous
  Country: US (occurrence: US)
  Receive Date: 20250417
  Receipt Date: 20250417
  Transmission Date: 20250717
  Serious: No
  Sender: Jubilant Radiopharma
  Company Number: US-JUBILANT RADIOPHARMA-2025US000008

PATIENT
  Sex: Female

DRUGS (1)
  1. DRAXIMAGE MAA [Suspect]
     Active Substance: TECHNETIUM TC-99M ALBUMIN AGGREGATED
     Indication: Ventilation/perfusion scan
     Dates: start: 20250324, end: 20250324

REACTIONS (2)
  - Drug ineffective [Recovered/Resolved]
  - Underdose [Recovered/Resolved]

NARRATIVE: CASE EVENT DATE: 20250324
